FAERS Safety Report 4877839-1 (Version None)
Quarter: 2005Q4

REPORT INFORMATION
  Report Type: 
  Country: None (occurrence: None)
  Receive Date: 20051206
  Receipt Date: 20050901
  Transmission Date: 20060501
  Serious: No
  Sender: FDA-Public Use
  Company Number: USA0509107168

PATIENT
  Age: 36 Year
  Sex: Female
  Weight: 86 kg

DRUGS (2)
  1. CYMBALTA [Suspect]
     Indication: DEPRESSION
     Dosage: 30 MG DAY
     Dates: start: 20050601
  2. ABILIFY [Concomitant]

REACTIONS (9)
  - ANXIETY [None]
  - DISTURBANCE IN ATTENTION [None]
  - DRUG INEFFECTIVE [None]
  - HEADACHE [None]
  - HYPERPHAGIA [None]
  - SLUGGISHNESS [None]
  - SOMNOLENCE [None]
  - WEIGHT INCREASED [None]
  - YAWNING [None]
